FAERS Safety Report 6396766-4 (Version None)
Quarter: 2009Q4

REPORT INFORMATION
  Report Type: 
  Country: None (occurrence: None)
  Receive Date: 20091012
  Receipt Date: 20090804
  Transmission Date: 20100525
  Serious: No
  Sender: FDA-Public Use
  Company Number: US-ASTRAZENECA-2009SE06910

PATIENT
  Sex: Female
  Weight: 86.2 kg

DRUGS (12)
  1. SYMBICORT [Suspect]
     Indication: ASTHMA
     Route: 055
     Dates: start: 20090401
  2. SPIRIVA [Concomitant]
     Dates: start: 20090401
  3. ALBUTEROL [Concomitant]
     Dates: start: 20090401
  4. ATROVENT [Concomitant]
     Dates: start: 20090401
  5. ATENOLOL [Concomitant]
  6. LISINOPRIL [Concomitant]
  7. HYDROCHLOROTHIAZIDE [Concomitant]
  8. COMBIVENT [Concomitant]
  9. BUSPAR [Concomitant]
     Indication: DEPRESSION
  10. PROZAC [Concomitant]
     Indication: DEPRESSION
  11. LORAZEPAM [Concomitant]
  12. VERAPAMIL [Concomitant]

REACTIONS (2)
  - CHEST DISCOMFORT [None]
  - DYSPNOEA [None]
